FAERS Safety Report 6712301-2 (Version None)
Quarter: 2010Q2

REPORT INFORMATION
  Report Type: 
  Country: None (occurrence: None)
  Receive Date: 20100505
  Receipt Date: 20100427
  Transmission Date: 20101027
  Serious: Yes (Hospitalization)
  Sender: FDA-Public Use
  Company Number: US-GILEAD-2010-0028768

PATIENT
  Sex: Female
  Weight: 83.2 kg

DRUGS (14)
  1. LETAIRIS [Suspect]
     Indication: PULMONARY ARTERIAL HYPERTENSION
     Route: 048
     Dates: start: 20100225
  2. REVATIO [Concomitant]
  3. LASIX [Concomitant]
  4. AMLODIPINE [Concomitant]
  5. CLOBETASOL 0.05% [Concomitant]
  6. FENTANYL DIS [Concomitant]
  7. NAPROXEN [Concomitant]
  8. TRAMADOL HCL [Concomitant]
  9. TRAZODONE HCL [Concomitant]
  10. DOVONEX 0.005% [Concomitant]
  11. AMBIEN [Concomitant]
  12. POT CHLORIDE [Concomitant]
  13. VITAMIN A+D [Concomitant]
  14. VITAMIN E [Concomitant]

REACTIONS (1)
  - PNEUMONIA [None]
